FAERS Safety Report 19447804 (Version 1)
Quarter: 2021Q2

REPORT INFORMATION
  Report Type: Spontaneous
  Country: RU (occurrence: RU)
  Receive Date: 20210622
  Receipt Date: 20210622
  Transmission Date: 20210717
  Serious: Yes (Other)
  Sender: FDA-Public Use
  Company Number: NVSC2021RU127597

PATIENT
  Age: 7 Year
  Sex: Male

DRUGS (6)
  1. MERCAPTOPURIN [Suspect]
     Active Substance: MERCAPTOPURINE
     Dosage: 25?50 %
     Route: 065
  2. METHOTREXATE. [Suspect]
     Active Substance: METHOTREXATE
     Indication: ACUTE LYMPHOCYTIC LEUKAEMIA
     Dosage: 50?75 % (DURING THE FIRST 3 WEEKS)
     Route: 065
  3. METHOTREXATE. [Suspect]
     Active Substance: METHOTREXATE
     Dosage: 25?50 %
     Route: 065
  4. MERCAPTOPURIN [Suspect]
     Active Substance: MERCAPTOPURINE
     Indication: ACUTE LYMPHOCYTIC LEUKAEMIA
     Dosage: 50?75 % (DURING THE FIRST 3 WEEKS)
     Route: 065
  5. MERCAPTOPURIN [Suspect]
     Active Substance: MERCAPTOPURINE
     Dosage: REDUCED TO 25 %
     Route: 065
  6. METHOTREXATE. [Suspect]
     Active Substance: METHOTREXATE
     Dosage: REDUCED TO 25 %
     Route: 065

REACTIONS (4)
  - Pancytopenia [Recovered/Resolved]
  - Febrile neutropenia [Recovered/Resolved]
  - Sepsis [Unknown]
  - Necrotising ulcerative gingivostomatitis [Recovered/Resolved]
